FAERS Safety Report 5058961-6 (Version None)
Quarter: 2006Q2

REPORT INFORMATION
  Report Type: 
  Country: None (occurrence: None)
  Receive Date: 20060629
  Receipt Date: 20060406
  Transmission Date: 20061013
  Serious: No
  Sender: FDA-Public Use
  Company Number: PHEH2006US04592

PATIENT
  Sex: 0

DRUGS (2)
  1. ENABLEX [Suspect]
  2. DETROL [Suspect]

REACTIONS (1)
  - INCONTINENCE [None]
